FAERS Safety Report 12199460 (Version 2)
Quarter: 2016Q1

REPORT INFORMATION
  Report Type: Spontaneous
  Country: US (occurrence: US)
  Receive Date: 20160322
  Receipt Date: 20160325
  Transmission Date: 20160526
  Serious: No
  Sender: FDA-Public Use
  Company Number: US-PFIZER INC-2016167107

PATIENT
  Age: 49 Year
  Sex: Male

DRUGS (1)
  1. ZIPRASIDONE. [Suspect]
     Active Substance: ZIPRASIDONE
     Dosage: 20 MG, DAILY
     Dates: start: 201510

REACTIONS (7)
  - Constipation [Unknown]
  - Blood pressure increased [Unknown]
  - Fatigue [Unknown]
  - Heart rate increased [Unknown]
  - Weight increased [Unknown]
  - Intentional product misuse [Unknown]
  - Gynaecomastia [Unknown]
